FAERS Safety Report 8110577-0 (Version None)
Quarter: 2012Q1

REPORT INFORMATION
  Report Type: 
  Country: None (occurrence: None)
  Receive Date: 20120203
  Receipt Date: 20120131
  Transmission Date: 20120608
  Serious: No
  Sender: FDA-Public Use
  Company Number: US-PFIZER INC-2012027162

PATIENT
  Sex: Female
  Weight: 72.6 kg

DRUGS (3)
  1. DEPO-PROVERA [Suspect]
     Indication: CONTRACEPTION
     Dosage: UNK, EVERY 3 MONTHS
     Dates: end: 20120101
  2. MERCAPTAMINE [Concomitant]
     Indication: DEPRESSION
     Dosage: 2 DF, 1X/DAY
  3. ALPRAZOLAM [Concomitant]
     Indication: ANXIETY
     Dosage: UNK, AS NEEDED

REACTIONS (1)
  - MENOPAUSE [None]
